FAERS Safety Report 7050026-7 (Version None)
Quarter: 2010Q4

REPORT INFORMATION
  Report Type: 
  Country: None (occurrence: None)
  Receive Date: 20101018
  Receipt Date: 20101004
  Transmission Date: 20110411
  Serious: Yes (Hospitalization)
  Sender: FDA-Public Use
  Company Number: US-BAYER-201025077NA

PATIENT
  Age: 36 Year
  Sex: Female
  Weight: 111 kg

DRUGS (2)
  1. MIRENA [Suspect]
     Indication: CONTRACEPTION
     Dosage: FREQUENCY: CONTINUOUS
     Route: 015
     Dates: start: 20080428
  2. UNKNOWN DRUG [Concomitant]
     Indication: HYPERTENSION

REACTIONS (5)
  - AMENORRHOEA [None]
  - ANAEMIA [None]
  - DEVICE EXPULSION [None]
  - PLACENTA PRAEVIA [None]
  - PREGNANCY WITH CONTRACEPTIVE DEVICE [None]
